FAERS Safety Report 9500460 (Version 1)
Quarter: 2013Q3

REPORT INFORMATION
  Report Type: Spontaneous
  Country: US (occurrence: None)
  Receive Date: 20130904
  Receipt Date: 20130904
  Transmission Date: 20140515
  Serious: No
  Sender: FDA-Public Use
  Company Number: None

PATIENT
  Age: 81 Year
  Sex: Female
  Weight: 56.7 kg

DRUGS (1)
  1. PREDNISONE [Suspect]
     Indication: ALLERGY TO PLANTS
     Dosage: 30 TAKE 4X3DAYS, 3X3DAYS TAKEN BY MOUTH
     Route: 048
     Dates: start: 20130823, end: 20130903

REACTIONS (6)
  - Insomnia [None]
  - Nervousness [None]
  - Psychomotor hyperactivity [None]
  - Extrasystoles [None]
  - Depression [None]
  - Vision blurred [None]
